FAERS Safety Report 19710042 (Version 1)
Quarter: 2021Q3

REPORT INFORMATION
  Report Type: Report from Study
  Country: US (occurrence: US)
  Receive Date: 20210817
  Receipt Date: 20210817
  Transmission Date: 20211014
  Serious: Yes (Other)
  Sender: FDA-Public Use
  Company Number: US-GLAXOSMITHKLINE-US2021AMR171338

PATIENT
  Age: 59 Year
  Sex: Female

DRUGS (4)
  1. BELANTAMAB MAFODOTIN. [Suspect]
     Active Substance: BELANTAMAB MAFODOTIN
     Indication: PLASMA CELL MYELOMA
     Dosage: 2.9 MG
  2. BELANTAMAB MAFODOTIN. [Suspect]
     Active Substance: BELANTAMAB MAFODOTIN
     Dosage: 1.9 MG
  3. THALIDOMIDE [Suspect]
     Active Substance: THALIDOMIDE
     Dosage: 100 MG
  4. THALIDOMIDE [Suspect]
     Active Substance: THALIDOMIDE
     Indication: PLASMA CELL MYELOMA
     Dosage: 200 MG

REACTIONS (8)
  - Keratopathy [Recovered/Resolved]
  - Discomfort [Unknown]
  - Arthralgia [Unknown]
  - Visual impairment [Unknown]
  - Therapeutic response unexpected [Unknown]
  - Vision blurred [Recovered/Resolved]
  - Musculoskeletal stiffness [Unknown]
  - Neuropathy peripheral [Unknown]

NARRATIVE: CASE EVENT DATE: 202101
